FAERS Safety Report 5158974-X (Version None)
Quarter: 2006Q4

REPORT INFORMATION
  Report Type: 
  Country: None (occurrence: None)
  Receive Date: 20061114
  Receipt Date: 20061009
  Transmission Date: 20070319
  Serious: Yes (Other)
  Sender: FDA-Public Use
  Company Number: CHNY2006GB02733

PATIENT
  Age: 64 Year
  Sex: Male

DRUGS (1)
  1. LAMISIL [Suspect]
     Indication: TINEA PEDIS
     Dosage: 1 DF, ONCE/SINGLE, TOPICAL
     Route: 061
     Dates: start: 20060918, end: 20060918

REACTIONS (8)
  - BLISTER [None]
  - PAIN IN EXTREMITY [None]
  - RASH [None]
  - SKIN EXFOLIATION [None]
  - SKIN FISSURES [None]
  - SKIN HAEMORRHAGE [None]
  - SKIN INFECTION [None]
  - SKIN REACTION [None]
